FAERS Safety Report 6150628-6 (Version None)
Quarter: 2009Q2

REPORT INFORMATION
  Report Type: 
  Country: None (occurrence: None)
  Receive Date: 20090409
  Receipt Date: 20090402
  Transmission Date: 20091009
  Serious: Yes (Life-Threatening, Other)
  Sender: FDA-Public Use
  Company Number: US-GENENTECH-269156

PATIENT
  Age: 68 Year
  Sex: Male

DRUGS (7)
  1. RITUXAN [Suspect]
     Indication: NON-HODGKIN'S LYMPHOMA
     Dosage: 375 MG/M2, UNK
     Dates: start: 20030116, end: 20071122
  2. CLADRIBINE [Concomitant]
     Indication: LYMPHOMA
     Dosage: 700 MG, UNK
     Dates: start: 20020509, end: 20021223
  3. CYCLOPHOSPHAMIDE [Concomitant]
     Indication: LYMPHOMA
     Dosage: 700 MG, UNK
     Dates: start: 20061113, end: 20070402
  4. VINCRISTINE [Concomitant]
     Indication: LYMPHOMA
     Dosage: 2 MG, UNK
     Dates: start: 20061113, end: 20070402
  5. PREDNISONE TAB [Concomitant]
     Indication: LYMPHOMA
     Dosage: 180 MG, UNK
     Dates: start: 20061113, end: 20070402
  6. BENDAMUSTINE [Concomitant]
     Indication: LYMPHOMA
     Dosage: 180 MG, UNK
     Dates: start: 20071126, end: 20080609
  7. LENALIDOMIDE [Concomitant]
     Indication: LYMPHOMA
     Dosage: 25 MG, QD
     Dates: start: 20080610, end: 20080618

REACTIONS (1)
  - PROGRESSIVE MULTIFOCAL LEUKOENCEPHALOPATHY [None]
